FAERS Safety Report 22187791 (Version 8)
Quarter: 2024Q2

REPORT INFORMATION
  Report Type: Report from Study
  Country: JP (occurrence: JP)
  Receive Date: 20230408
  Receipt Date: 20240525
  Transmission Date: 20240715
  Serious: Yes (Death, Hospitalization, Other)
  Sender: FDA-Public Use
  Company Number: JP-TAKEDA-2023TJP004162

PATIENT
  Age: 58 Year
  Sex: Male

DRUGS (1)
  1. LEUPROLIDE ACETATE [Suspect]
     Active Substance: ISOPROPYL ALCOHOL\LEUPROLIDE ACETATE
     Indication: Bulbospinal muscular atrophy congenital
     Route: 058
     Dates: start: 20180516, end: 20211004

REACTIONS (5)
  - Mobility decreased [Fatal]
  - Hypertension [Unknown]
  - Diabetes mellitus [Fatal]
  - Lipid metabolism disorder [Unknown]
  - Death [Fatal]

NARRATIVE: CASE EVENT DATE: 20191109
